FAERS Safety Report 13835565 (Version 1)
Quarter: 2017Q3

REPORT INFORMATION
  Report Type: Spontaneous
  Country: PL (occurrence: PL)
  Receive Date: 20170804
  Receipt Date: 20170804
  Transmission Date: 20171127
  Serious: Yes (Hospitalization)
  Sender: FDA-Public Use
  Company Number: PL-IMPAX LABORATORIES, INC-2016-IPXL-02129

PATIENT
  Age: 5 Year
  Sex: Female

DRUGS (1)
  1. DIVALPROEX SODIUM ER [Suspect]
     Active Substance: DIVALPROEX SODIUM
     Indication: EPILEPSY
     Dosage: UNK
     Route: 065

REACTIONS (7)
  - Drug administered to patient of inappropriate age [Unknown]
  - Pericardial effusion [Recovering/Resolving]
  - Thrombocytopenia [Recovering/Resolving]
  - Product use issue [Unknown]
  - Drug interaction [Recovering/Resolving]
  - Pancreatitis acute [Recovering/Resolving]
  - Bradycardia [Recovering/Resolving]
